FAERS Safety Report 18006695 (Version 1)
Quarter: 2020Q3

REPORT INFORMATION
  Report Type: Spontaneous
  Country: CA (occurrence: CA)
  Receive Date: 20200710
  Receipt Date: 20200710
  Transmission Date: 20201103
  Serious: Yes (Hospitalization, Other)
  Sender: FDA-Public Use
  Company Number: CA-PFIZER INC-2020262605

PATIENT
  Age: 6 Year
  Sex: Male
  Weight: 35 kg

DRUGS (4)
  1. ACETAMINOPHEN. [Concomitant]
     Active Substance: ACETAMINOPHEN
     Dosage: UNK
     Route: 065
  2. LOPERAMIDE [Concomitant]
     Active Substance: LOPERAMIDE
     Dosage: UNK
     Route: 065
  3. MELATONIN [Concomitant]
     Active Substance: MELATONIN
     Dosage: UNK
     Route: 065
  4. ADVIL [Suspect]
     Active Substance: IBUPROFEN
     Dosage: 380 MG, 4X/DAY
     Route: 048

REACTIONS (6)
  - Diarrhoea [Unknown]
  - Gastritis [Unknown]
  - Pyrexia [Unknown]
  - Vomiting [Unknown]
  - Product use issue [Unknown]
  - Haematemesis [Unknown]
